FAERS Safety Report 5029117-8 (Version None)
Quarter: 2006Q2

REPORT INFORMATION
  Report Type: 
  Country: None (occurrence: None)
  Receive Date: 20060619
  Receipt Date: 20060607
  Transmission Date: 20061013
  Serious: Yes (Death)
  Sender: FDA-Public Use
  Company Number: JP-BRISTOL-MYERS SQUIBB COMPANY-13403290

PATIENT
  Age: 80 Year
  Sex: Female

DRUGS (3)
  1. MAXIPIME [Suspect]
     Indication: FEBRILE NEUTROPENIA
     Dosage: THERAPY: 2 G DAILY 01-MAR-2006 (1 DAY) INCREASED TO 2 G TWICE DAILY ON 02-MAR-2006 TO 06-MAR-2006.
     Dates: start: 20060301, end: 20060306
  2. NARTOGRASTIM [Concomitant]
     Dates: start: 20060301, end: 20060304
  3. MICAFUNGIN SODIUM [Concomitant]
     Dates: start: 20060302, end: 20060306

REACTIONS (2)
  - LYMPHOMA [None]
  - PNEUMONIA [None]
